FAERS Safety Report 25795419 (Version 2)
Quarter: 2025Q3

REPORT INFORMATION
  Report Type: Spontaneous
  Country: EU (occurrence: EU)
  Receive Date: 20250912
  Receipt Date: 20250926
  Transmission Date: 20251021
  Serious: Yes (Hospitalization, Other)
  Sender: STRIDES
  Company Number: None

PATIENT
  Age: 7 Year
  Sex: Female

DRUGS (2)
  1. IBUPROFEN [Suspect]
     Active Substance: IBUPROFEN
     Indication: Hyperpyrexia
     Route: 065
  2. ACETAMINOPHEN [Concomitant]
     Active Substance: ACETAMINOPHEN
     Indication: Hyperpyrexia
     Route: 065

REACTIONS (5)
  - Methaemoglobinaemia [Recovered/Resolved]
  - Hyperferritinaemia [Recovered/Resolved]
  - Breakthrough haemolysis [Unknown]
  - Haemolytic anaemia [Recovering/Resolving]
  - Acute kidney injury [Recovered/Resolved]
